FAERS Safety Report 7258735-1 (Version None)
Quarter: 2011Q1

REPORT INFORMATION
  Report Type: 
  Country: None (occurrence: None)
  Receive Date: 20110129
  Receipt Date: 20100528
  Transmission Date: 20110831
  Serious: No
  Sender: FDA-Public Use
  Company Number: US-ABBOTT-10P-163-0648150-00

PATIENT
  Sex: Female

DRUGS (5)
  1. MICRO-K [Concomitant]
     Indication: MINERAL SUPPLEMENTATION
     Dosage: DAILY
  2. IRON [Concomitant]
     Indication: MINERAL SUPPLEMENTATION
  3. VITAMIN B-12 [Concomitant]
     Indication: VITAMIN SUPPLEMENTATION
     Dosage: DAILY
  4. IMURAN [Concomitant]
     Indication: CROHN'S DISEASE
     Dosage: DAILY
  5. HUMIRA [Suspect]
     Indication: CROHN'S DISEASE
     Route: 058
     Dates: start: 20090401, end: 20100501

REACTIONS (1)
  - HERPES ZOSTER [None]
